FAERS Safety Report 10612134 (Version 2)
Quarter: 2014Q4

REPORT INFORMATION
  Report Type: Spontaneous
  Country: CA (occurrence: CA)
  Receive Date: 20141127
  Receipt Date: 20141224
  Transmission Date: 20150529
  Serious: Yes (Death, Other)
  Sender: FDA-Public Use
  Company Number: CA-ROCHE-1496736

PATIENT

DRUGS (1)
  1. CATHFLO ACTIVASE [Suspect]
     Active Substance: ALTEPLASE
     Indication: CATHETER MANAGEMENT
     Route: 065

REACTIONS (2)
  - Malaise [Unknown]
  - Death [Fatal]
